FAERS Safety Report 8871199 (Version 1)
Quarter: 2012Q4

REPORT INFORMATION
  Report Type: 
  Country: US (occurrence: US)
  Receive Date: 20121023
  Receipt Date: 20121023
  Transmission Date: 20130627
  Serious: Yes (Hospitalization, Other)
  Sender: FDA-Public Use
  Company Number: US-AMGEN-USASP2011062048

PATIENT
  Age: 56 Year
  Sex: Female

DRUGS (2)
  1. ENBREL [Suspect]
     Indication: RHEUMATOID ARTHRITIS
     Dosage: 50 mg, qwk
     Dates: start: 20110813, end: 20111105
  2. TREXALL [Concomitant]
     Dosage: 6 mg, qwk

REACTIONS (5)
  - Drug hypersensitivity [Recovered/Resolved]
  - Urinary tract infection [Not Recovered/Not Resolved]
  - Herpes virus infection [Recovered/Resolved]
  - Genital herpes [Recovered/Resolved]
  - Rheumatoid arthritis [Not Recovered/Not Resolved]
